FAERS Safety Report 17702450 (Version 3)
Quarter: 2021Q2

REPORT INFORMATION
  Report Type: Spontaneous
  Country: US (occurrence: US)
  Receive Date: 20200424
  Receipt Date: 20210419
  Transmission Date: 20210716
  Serious: Yes (Hospitalization, Other)
  Sender: FDA-Public Use
  Company Number: US-ASTRAZENECA-2020SE53528

PATIENT
  Age: 38 Year
  Sex: Female

DRUGS (68)
  1. CETIRIZINE [Concomitant]
     Active Substance: CETIRIZINE HYDROCHLORIDE
  2. OXYCODONE [Concomitant]
     Active Substance: OXYCODONE
     Dates: start: 20130318
  3. FUROSEMIDE. [Concomitant]
     Active Substance: FUROSEMIDE
  4. ROBAXIN [Concomitant]
     Active Substance: METHOCARBAMOL
  5. DICLOFENAC [Concomitant]
     Active Substance: DICLOFENAC
  6. BACLOFEN. [Concomitant]
     Active Substance: BACLOFEN
  7. HYPROMELLOSE [Concomitant]
     Active Substance: HYPROMELLOSES
  8. RISPERIDONE. [Concomitant]
     Active Substance: RISPERIDONE
  9. NEXIUM [Suspect]
     Active Substance: ESOMEPRAZOLE MAGNESIUM
     Indication: GASTROOESOPHAGEAL REFLUX DISEASE
     Route: 048
     Dates: start: 199101, end: 199603
  10. PRILOSEC [Suspect]
     Active Substance: OMEPRAZOLE MAGNESIUM
     Indication: GASTROOESOPHAGEAL REFLUX DISEASE
     Route: 048
     Dates: start: 199101, end: 199603
  11. PANTOPRAZOLE [Concomitant]
     Active Substance: PANTOPRAZOLE
     Dates: start: 20130918
  12. ZOFRAN [Concomitant]
     Active Substance: ONDANSETRON HYDROCHLORIDE
  13. TOPAMAX [Concomitant]
     Active Substance: TOPIRAMATE
  14. LOPERAMIDE [Concomitant]
     Active Substance: LOPERAMIDE
  15. TUBERCULIN NOS [Concomitant]
     Active Substance: TUBERCULIN PURIFIED PROTEIN DERIVATIVE
  16. ZOLPIDEM [Concomitant]
     Active Substance: ZOLPIDEM TARTRATE
  17. FLUOXETINE [Concomitant]
     Active Substance: FLUOXETINE HYDROCHLORIDE
  18. HYOSCYAMINE. [Concomitant]
     Active Substance: HYOSCYAMINE
  19. SORBITOL. [Concomitant]
     Active Substance: SORBITOL
  20. TRAZODONE [Concomitant]
     Active Substance: TRAZODONE HYDROCHLORIDE
  21. ESTRADIOL. [Concomitant]
     Active Substance: ESTRADIOL
  22. NAPROXEN. [Concomitant]
     Active Substance: NAPROXEN
  23. PSYLLIUM [Concomitant]
     Active Substance: PLANTAGO SEED
  24. PREVACID [Suspect]
     Active Substance: LANSOPRAZOLE
     Indication: GASTROOESOPHAGEAL REFLUX DISEASE
     Route: 065
     Dates: start: 199101, end: 199603
  25. PREVACID [Suspect]
     Active Substance: LANSOPRAZOLE
     Indication: GASTROOESOPHAGEAL REFLUX DISEASE
     Route: 065
     Dates: start: 1996, end: 2004
  26. CALCIUM [Concomitant]
     Active Substance: CALCIUM
  27. PROPRANOLOL [Concomitant]
     Active Substance: PROPRANOLOL HYDROCHLORIDE
  28. PERCOCET [Concomitant]
     Active Substance: ACETAMINOPHEN\OXYCODONE HYDROCHLORIDE
  29. PRAZOSIN. [Concomitant]
     Active Substance: PRAZOSIN
  30. TIZANIDINE. [Concomitant]
     Active Substance: TIZANIDINE
  31. PRILOSEC [Suspect]
     Active Substance: OMEPRAZOLE MAGNESIUM
     Indication: GASTROOESOPHAGEAL REFLUX DISEASE
     Route: 048
     Dates: start: 1991, end: 1996
  32. BUPROPION. [Concomitant]
     Active Substance: BUPROPION
  33. LIDOCAINE. [Concomitant]
     Active Substance: LIDOCAINE
  34. FENTANYL. [Concomitant]
     Active Substance: FENTANYL
     Dates: start: 20130318
  35. ZIPRASIDONE. [Concomitant]
     Active Substance: ZIPRASIDONE
     Dates: start: 20130318
  36. PREMARIN [Concomitant]
     Active Substance: ESTROGENS, CONJUGATED
  37. RESTASIS [Concomitant]
     Active Substance: CYCLOSPORINE
  38. VENLAFAXINE [Concomitant]
     Active Substance: VENLAFAXINE HYDROCHLORIDE
  39. SENNOSIDES. [Concomitant]
     Active Substance: SENNOSIDES
  40. NEXIUM [Suspect]
     Active Substance: ESOMEPRAZOLE MAGNESIUM
     Indication: GASTROOESOPHAGEAL REFLUX DISEASE
     Route: 048
     Dates: start: 2004, end: 2006
  41. PRILOSEC [Suspect]
     Active Substance: OMEPRAZOLE MAGNESIUM
     Indication: GASTROOESOPHAGEAL REFLUX DISEASE
     Dosage: GENERIC
     Route: 048
  42. PRILOSEC [Suspect]
     Active Substance: OMEPRAZOLE MAGNESIUM
     Indication: GASTROOESOPHAGEAL REFLUX DISEASE
     Route: 048
  43. GABAPENTIN. [Concomitant]
     Active Substance: GABAPENTIN
  44. REGLAN [Concomitant]
     Active Substance: METOCLOPRAMIDE HYDROCHLORIDE
  45. LEVOTHYROXINE. [Concomitant]
     Active Substance: LEVOTHYROXINE
  46. TEMAZEPAM. [Concomitant]
     Active Substance: TEMAZEPAM
     Dates: start: 20130318
  47. MORPHINE [Concomitant]
     Active Substance: MORPHINE
  48. CALCITONIN [Concomitant]
     Active Substance: CALCITONIN
  49. COMPAZINE [Concomitant]
     Active Substance: PROCHLORPERAZINE MALEATE
  50. SENOKOT [Concomitant]
     Active Substance: SENNOSIDES
  51. PHENERGAN [Concomitant]
     Active Substance: PROMETHAZINE HYDROCHLORIDE
     Indication: NAUSEA
  52. LORAZEPAM. [Concomitant]
     Active Substance: LORAZEPAM
     Dates: start: 20140615
  53. AMOXICILLIN. [Concomitant]
     Active Substance: AMOXICILLIN
  54. MELOXICAM. [Concomitant]
     Active Substance: MELOXICAM
  55. VALIUM [Concomitant]
     Active Substance: DIAZEPAM
  56. VITAMIN D [Concomitant]
     Active Substance: VITAMIN D NOS
  57. CYCLOBENZAPRINE. [Concomitant]
     Active Substance: CYCLOBENZAPRINE
  58. DOCUSATE [Concomitant]
     Active Substance: DOCUSATE
  59. MAGNESIUM OXIDE. [Concomitant]
     Active Substance: MAGNESIUM OXIDE
  60. BUSPAR [Concomitant]
     Active Substance: BUSPIRONE HYDROCHLORIDE
  61. ESTROGEN [Concomitant]
     Active Substance: ESTROGENS
  62. MACROGOL [Concomitant]
     Active Substance: POLYETHYLENE GLYCOLS
  63. ASPIRIN. [Concomitant]
     Active Substance: ASPIRIN
     Dates: start: 20120314
  64. LYRICA [Concomitant]
     Active Substance: PREGABALIN
  65. POTASSIUM CHLORIDE. [Concomitant]
     Active Substance: POTASSIUM CHLORIDE
  66. MONTELUKAST [Concomitant]
     Active Substance: MONTELUKAST SODIUM
  67. BENZONATATE. [Concomitant]
     Active Substance: BENZONATATE
  68. VANCOMYCIN [Concomitant]
     Active Substance: VANCOMYCIN

REACTIONS (3)
  - Renal failure [Unknown]
  - Chronic kidney disease [Not Recovered/Not Resolved]
  - Acute kidney injury [Not Recovered/Not Resolved]

NARRATIVE: CASE EVENT DATE: 2006
